FAERS Safety Report 4748063-8 (Version None)
Quarter: 2005Q3

REPORT INFORMATION
  Report Type: 
  Country: None (occurrence: None)
  Receive Date: 20050818
  Receipt Date: 20041203
  Transmission Date: 20060218
  Serious: Yes (Death)
  Sender: FDA-Public Use
  Company Number: GB-GLAXOSMITHKLINE-B0359730A

PATIENT
  Sex: Female

DRUGS (7)
  1. SEROXAT [Suspect]
     Dosage: 20MG PER DAY
     Route: 048
     Dates: start: 19950601, end: 20010101
  2. DIAZEPAM [Suspect]
     Dosage: 20MG UNKNOWN
     Route: 048
  3. MIGRALEVE [Suspect]
     Route: 048
  4. LITHIUM CARBONATE [Concomitant]
     Route: 065
  5. THIORIDAZINE [Concomitant]
     Route: 065
  6. DESOGESTREL AND ETHINYL ESTRADIOL [Concomitant]
     Route: 065
  7. PROCYCLIDINE HYDROCHLORIDE 2MG TAB [Concomitant]
     Dosage: 5MG PER DAY
     Route: 065

REACTIONS (2)
  - COMPLETED SUICIDE [None]
  - OVERDOSE [None]
